FAERS Safety Report 10922989 (Version 1)
Quarter: 2015Q1

REPORT INFORMATION
  Report Type: Spontaneous
  Country: JP (occurrence: JP)
  Receive Date: 20150317
  Receipt Date: 20150317
  Transmission Date: 20150721
  Serious: Yes (Hospitalization)
  Sender: FDA-Public Use
  Company Number: JP-PFIZER INC-2015079189

PATIENT
  Age: 9 Decade
  Sex: Male

DRUGS (1)
  1. INLYTA [Suspect]
     Active Substance: AXITINIB
     Route: 048

REACTIONS (3)
  - Hypertension [Recovered/Resolved]
  - Dysphonia [Recovered/Resolved]
  - Haematotoxicity [Recovered/Resolved]

NARRATIVE: CASE EVENT DATE: 201211
